FAERS Safety Report 6431169-5 (Version None)
Quarter: 2009Q4

REPORT INFORMATION
  Report Type: 
  Country: None (occurrence: None)
  Receive Date: 20091105
  Receipt Date: 20091105
  Transmission Date: 20100525
  Serious: Yes (Hospitalization, Other)
  Sender: FDA-Public Use
  Company Number: None

PATIENT
  Age: 39 Year
  Sex: Female
  Weight: 86 kg

DRUGS (2)
  1. ZOLOFT [Suspect]
     Indication: DEPRESSION
     Dosage: 300 MG DAILYPO, PRIOR TO ADMISSION
     Route: 048
  2. FENTANYL-100 [Suspect]
     Indication: PAIN
     Dosage: 10 MCG IV
     Route: 042
     Dates: start: 20091020, end: 20091020

REACTIONS (6)
  - HYPERTENSIVE CRISIS [None]
  - PNEUMONIA [None]
  - RESPIRATORY FAILURE [None]
  - SEPSIS [None]
  - SEROTONIN SYNDROME [None]
  - TACHYCARDIA [None]
